FAERS Safety Report 19755591 (Version 2)
Quarter: 2021Q4

REPORT INFORMATION
  Report Type: Spontaneous
  Country: JP (occurrence: JP)
  Receive Date: 20210827
  Receipt Date: 20211221
  Transmission Date: 20220303
  Serious: Yes (Life-Threatening, Other)
  Sender: FDA-Public Use
  Company Number: JP-CELGENE-JPN-20210808437

PATIENT
  Age: 73 Year

DRUGS (2)
  1. VIDAZA [Suspect]
     Active Substance: AZACITIDINE
     Indication: Myelodysplastic syndrome
     Route: 065
     Dates: start: 20210415, end: 20210501
  2. VENETOCLAX [Concomitant]
     Active Substance: VENETOCLAX
     Indication: Myelodysplastic syndrome
     Route: 065
     Dates: start: 20210415, end: 20210501

REACTIONS (1)
  - Neutropenia [Unknown]

NARRATIVE: CASE EVENT DATE: 20210101
